FAERS Safety Report 18545467 (Version 3)
Quarter: 2020Q4

REPORT INFORMATION
  Report Type: Spontaneous
  Country: CA (occurrence: CA)
  Receive Date: 20201125
  Receipt Date: 20201228
  Transmission Date: 20210114
  Serious: Yes (Death, Other)
  Sender: FDA-Public Use
  Company Number: CA-PFIZER INC-2020281963

PATIENT
  Age: 51 Year
  Sex: Female
  Weight: 80 kg

DRUGS (5)
  1. ZIRABEV [Suspect]
     Active Substance: BEVACIZUMAB-BVZR
     Dosage: 777 MG, CYCLIC (EVERY 2 WEEKS)
     Route: 042
     Dates: start: 20200722
  2. ZIRABEV [Suspect]
     Active Substance: BEVACIZUMAB-BVZR
     Dosage: 10 MG/KG (EVERY 2 WEEKS)
     Route: 042
     Dates: start: 20201210, end: 20201210
  3. ZIRABEV [Suspect]
     Active Substance: BEVACIZUMAB-BVZR
     Dosage: 800 MG, CYCLIC (EVERY 2 WEEKS)
     Route: 042
     Dates: start: 20200819
  4. ZIRABEV [Suspect]
     Active Substance: BEVACIZUMAB-BVZR
     Dosage: 777 MG, CYCLIC (EVERY 2 WEEKS)
     Route: 042
     Dates: start: 20200805
  5. ZIRABEV [Suspect]
     Active Substance: BEVACIZUMAB-BVZR
     Dosage: 10 MG/KG (EVERY 2 WEEKS)
     Route: 042

REACTIONS (15)
  - Blood lactate dehydrogenase increased [Unknown]
  - Blood pressure increased [Unknown]
  - Alanine aminotransferase increased [Unknown]
  - Weight decreased [Unknown]
  - Aspartate aminotransferase increased [Unknown]
  - Inappropriate schedule of product administration [Unknown]
  - Product dose omission issue [Unknown]
  - Gamma-glutamyltransferase increased [Unknown]
  - Blood glucose increased [Unknown]
  - Lymphocyte count decreased [Unknown]
  - Death [Fatal]
  - Red cell distribution width increased [Unknown]
  - Monocyte count decreased [Unknown]
  - Hemiplegia [Not Recovered/Not Resolved]
  - Platelet count decreased [Unknown]

NARRATIVE: CASE EVENT DATE: 20200722
